FAERS Safety Report 6911117-1 (Version None)
Quarter: 2010Q3

REPORT INFORMATION
  Report Type: 
  Country: None (occurrence: None)
  Receive Date: 20100806
  Receipt Date: 20100727
  Transmission Date: 20110219
  Serious: Yes (Other)
  Sender: FDA-Public Use
  Company Number: US-JNJCH-2010014646

PATIENT
  Sex: Female
  Weight: 68 kg

DRUGS (3)
  1. NEOSPORIN [Suspect]
     Indication: SCRATCH
     Dosage: TEXT:TO COVER ONE TIME
     Route: 061
     Dates: start: 20100613, end: 20100613
  2. VITAMIN TAB [Concomitant]
     Indication: MINERAL SUPPLEMENTATION
     Dosage: TEXT:UNKNOWN
     Route: 065
  3. ATIVAN [Concomitant]
     Indication: SLEEP DISORDER
     Dosage: TEXT:UNKNOWN
     Route: 065

REACTIONS (2)
  - HYPERSENSITIVITY [None]
  - SIMILAR REACTION ON PREVIOUS EXPOSURE TO DRUG [None]
